FAERS Safety Report 9322760 (Version 1)
Quarter: 2013Q2

REPORT INFORMATION
  Report Type: Spontaneous
  Country: ES (occurrence: ES)
  Receive Date: 20130601
  Receipt Date: 20130601
  Transmission Date: 20140414
  Serious: Yes (Hospitalization)
  Sender: FDA-Public Use
  Company Number: ES-ROCHE-1230989

PATIENT
  Age: 11 Year
  Sex: Male

DRUGS (7)
  1. VALCYTE [Suspect]
     Indication: EPSTEIN-BARR VIRUS INFECTION
     Route: 048
     Dates: start: 200709, end: 201206
  2. ADVAGRAF [Suspect]
     Indication: LIVER TRANSPLANT
     Route: 048
     Dates: start: 201201, end: 20121023
  3. PROGRAF [Suspect]
     Indication: LIVER TRANSPLANT
     Route: 048
     Dates: start: 20020626
  4. URBASON (SPAIN) [Suspect]
     Indication: LIVER TRANSPLANT
     Route: 048
     Dates: start: 20020626
  5. RANITIDINE [Concomitant]
     Indication: LIVER TRANSPLANT
     Route: 048
     Dates: start: 2007
  6. SEPTRIN [Concomitant]
     Indication: ANTIBIOTIC PROPHYLAXIS
     Route: 048
     Dates: start: 200207
  7. URSOCHOL [Concomitant]
     Indication: CHOLESTASIS
     Route: 048
     Dates: start: 200207

REACTIONS (1)
  - Burkitt^s lymphoma [Not Recovered/Not Resolved]
